FAERS Safety Report 25852091 (Version 1)
Quarter: 2025Q3

REPORT INFORMATION
  Report Type: Spontaneous
  Country: US (occurrence: None)
  Receive Date: 20250925
  Receipt Date: 20250925
  Transmission Date: 20251020
  Serious: Yes (Hospitalization)
  Sender: FDA-CTU
  Company Number: None

PATIENT
  Sex: Female

DRUGS (1)
  1. MYCOPHENOLIC ACID [Suspect]
     Active Substance: MYCOPHENOLIC ACID
     Indication: Renal disorder
     Dosage: OTHER QUANTITY : TAKE 2 TABLETS;?FREQUENCY : TWICE A DAY;?
     Route: 048
     Dates: start: 20250411

REACTIONS (1)
  - Kidney infection [None]
